FAERS Safety Report 7412802-8 (Version None)
Quarter: 2011Q2

REPORT INFORMATION
  Report Type: 
  Country: None (occurrence: None)
  Receive Date: 20110413
  Receipt Date: 20110404
  Transmission Date: 20111010
  Serious: Yes (Hospitalization)
  Sender: FDA-Public Use
  Company Number: B0676797A

PATIENT
  Sex: Male
  Weight: 96.4 kg

DRUGS (7)
  1. DIGOXIN [Concomitant]
     Indication: ATRIAL FIBRILLATION
     Dosage: .125MG PER DAY
     Route: 048
     Dates: start: 20100622
  2. ALLOPURINOL [Concomitant]
     Indication: HYPERURICAEMIA
     Dosage: 100MG PER DAY
     Route: 048
     Dates: start: 20100614
  3. PREDNISOLONE [Suspect]
     Indication: MULTIPLE MYELOMA
     Dosage: 195MG PER DAY
     Dates: start: 20090924
  4. WARFARIN [Concomitant]
     Indication: CEREBRAL ISCHAEMIA
     Dosage: 5MG PER DAY
     Route: 048
     Dates: start: 20100611
  5. PANTOPRAZOLE [Concomitant]
     Indication: PROPHYLAXIS
     Dosage: 20MG PER DAY
     Route: 048
     Dates: start: 20100623
  6. MELPHALAN HYDROCHLORIDE [Suspect]
     Indication: MULTIPLE MYELOMA
     Dosage: 20MG PER DAY
     Route: 048
     Dates: start: 20090924
  7. THALIDOMIDE [Suspect]
     Indication: MULTIPLE MYELOMA
     Dosage: 100MG PER DAY
     Route: 048
     Dates: start: 20090924

REACTIONS (3)
  - ANAEMIA [None]
  - CARDIAC FAILURE [None]
  - ATRIAL FIBRILLATION [None]
